FAERS Safety Report 7500830-3 (Version None)
Quarter: 2011Q2

REPORT INFORMATION
  Report Type: 
  Country: None (occurrence: None)
  Receive Date: 20110524
  Receipt Date: 20110513
  Transmission Date: 20111010
  Serious: Yes (Other)
  Sender: FDA-Public Use
  Company Number: A0912985A

PATIENT
  Sex: Female
  Weight: 66.4 kg

DRUGS (8)
  1. VALTREX [Suspect]
     Dosage: 500MG TWICE PER DAY
     Route: 065
     Dates: start: 20060101
  2. LEVOTHYROXINE SODIUM [Concomitant]
  3. FLURAZEPAM [Concomitant]
  4. ROXICODONE [Concomitant]
  5. CYMBALTA [Concomitant]
  6. CRESTOR [Concomitant]
  7. LASIX [Concomitant]
  8. UNKNOWN MEDICATION [Concomitant]

REACTIONS (3)
  - SPEECH DISORDER [None]
  - COGNITIVE DISORDER [None]
  - CEREBROVASCULAR ACCIDENT [None]
